FAERS Safety Report 9379359 (Version 2)
Quarter: 2013Q3

REPORT INFORMATION
  Report Type: Spontaneous
  Country: US (occurrence: None)
  Receive Date: 20130626
  Receipt Date: 20130703
  Transmission Date: 20140515
  Serious: Yes (Death)
  Sender: FDA-Public Use
  Company Number: 2013P1006304

PATIENT
  Age: 53 Year
  Sex: Male
  Weight: 97.52 kg

DRUGS (3)
  1. MYORISAN [Suspect]
     Indication: ACNE
     Route: 048
     Dates: start: 20130419, end: 201305
  2. PAXIL [Concomitant]
  3. ASPIRIN [Concomitant]

REACTIONS (3)
  - Anxiety [None]
  - Arthralgia [None]
  - Completed suicide [None]
